FAERS Safety Report 6701228-8 (Version None)
Quarter: 2010Q2

REPORT INFORMATION
  Report Type: 
  Country: None (occurrence: None)
  Receive Date: 20100427
  Receipt Date: 20100419
  Transmission Date: 20101027
  Serious: Yes (Death)
  Sender: FDA-Public Use
  Company Number: 1000013332

PATIENT
  Age: 71 Year
  Sex: Male

DRUGS (4)
  1. CITALOPRAM (CITALOPRAM HYDROBROMIDE) [Suspect]
     Indication: DEPRESSION
     Dosage: SEE IMAGE
     Route: 042
     Dates: start: 20100304, end: 20100324
  2. CITALOPRAM (CITALOPRAM HYDROBROMIDE) [Suspect]
     Indication: DEPRESSION
     Dosage: SEE IMAGE
     Route: 042
     Dates: start: 20100328, end: 20100409
  3. LITHIUM CARBONATE [Concomitant]
  4. TPN [Concomitant]

REACTIONS (3)
  - EATING DISORDER [None]
  - NAUSEA [None]
  - PNEUMONIA [None]
